FAERS Safety Report 8510846-6 (Version None)
Quarter: 2012Q3

REPORT INFORMATION
  Report Type: 
  Country: None (occurrence: None)
  Receive Date: 20120716
  Receipt Date: 20120703
  Transmission Date: 20120928
  Serious: Yes (Disabling)
  Sender: FDA-Public Use
  Company Number: US-ELI_LILLY_AND_COMPANY-US201205002051

PATIENT
  Sex: Female
  Weight: 95.238 kg

DRUGS (2)
  1. HUMALOG [Suspect]
     Dosage: 20 U, QD
     Dates: start: 20120615
  2. HUMALOG [Suspect]
     Indication: TYPE 2 DIABETES MELLITUS
     Dosage: UNK UNK, OTHER

REACTIONS (1)
  - NEUROPATHIC ARTHROPATHY [None]
